FAERS Safety Report 14918401 (Version 4)
Quarter: 2018Q3

REPORT INFORMATION
  Report Type: Spontaneous
  Country: US (occurrence: US)
  Receive Date: 20180521
  Receipt Date: 20180905
  Transmission Date: 20181010
  Serious: Yes (Other)
  Sender: FDA-Public Use
  Company Number: PHEH2018US019126

PATIENT
  Age: 48 Year
  Sex: Female

DRUGS (2)
  1. GILENYA [Suspect]
     Active Substance: FINGOLIMOD HYDROCHLORIDE
     Indication: RELAPSING-REMITTING MULTIPLE SCLEROSIS
     Dosage: 0.5 MG, QD
     Route: 048
     Dates: start: 20151001, end: 20180401
  2. GABAPENTIN. [Concomitant]
     Active Substance: GABAPENTIN
     Indication: PRODUCT USED FOR UNKNOWN INDICATION
     Dosage: 800 MG, UNK
     Route: 065

REACTIONS (9)
  - Lymphocyte count decreased [Unknown]
  - Aphasia [Recovering/Resolving]
  - Left atrial enlargement [Unknown]
  - Posterior reversible encephalopathy syndrome [Recovering/Resolving]
  - Ischaemia [Unknown]
  - Pneumonia [Unknown]
  - Confusional state [Recovering/Resolving]
  - Seizure [Recovering/Resolving]
  - QRS axis abnormal [Unknown]

NARRATIVE: CASE EVENT DATE: 201804
